FAERS Safety Report 10424394 (Version 3)
Quarter: 2017Q1

REPORT INFORMATION
  Report Type: Spontaneous
  Country: US (occurrence: US)
  Receive Date: 20140902
  Receipt Date: 20170113
  Transmission Date: 20170428
  Serious: Yes (Death, Hospitalization, Other)
  Sender: FDA-Public Use
  Company Number: US-009507513-1408USA017124

PATIENT
  Sex: Male
  Weight: 52.15 kg

DRUGS (2)
  1. JANUVIA [Suspect]
     Active Substance: SITAGLIPTIN PHOSPHATE
     Indication: TYPE 2 DIABETES MELLITUS
     Dosage: 100 MG, QD
     Route: 048
     Dates: start: 20100505, end: 20111023
  2. JANUMET [Suspect]
     Active Substance: METFORMIN HYDROCHLORIDE\SITAGLIPTIN PHOSPHATE
     Indication: TYPE 2 DIABETES MELLITUS
     Dosage: 50-500 MG, BID
     Route: 048
     Dates: start: 20071215, end: 20100419

REACTIONS (26)
  - Atelectasis [Unknown]
  - Alopecia [Unknown]
  - Transaminases increased [Unknown]
  - Pancreatic carcinoma metastatic [Unknown]
  - Malignant melanoma in situ [Unknown]
  - Metastases to peritoneum [Unknown]
  - Malignant melanoma [Unknown]
  - Osteosclerosis [Unknown]
  - Adverse drug reaction [Unknown]
  - Cholecystectomy [Unknown]
  - Osteitis deformans [Unknown]
  - Hepatic cyst [Unknown]
  - Appendix disorder [Unknown]
  - Renal cyst [Unknown]
  - Hypercholesterolaemia [Unknown]
  - Metastases to liver [Unknown]
  - Colon cancer [Unknown]
  - Large intestine polyp [Unknown]
  - Hypertension [Unknown]
  - Death [Fatal]
  - Helicobacter infection [Unknown]
  - Neuropathy peripheral [Unknown]
  - Back pain [Unknown]
  - Gastritis erosive [Unknown]
  - Bladder trabeculation [Unknown]
  - Nodule [Unknown]

NARRATIVE: CASE EVENT DATE: 2009
